FAERS Safety Report 7288595-4 (Version None)
Quarter: 2011Q1

REPORT INFORMATION
  Report Type: 
  Country: None (occurrence: None)
  Receive Date: 20110211
  Receipt Date: 20110131
  Transmission Date: 20110831
  Serious: Yes (Hospitalization)
  Sender: FDA-Public Use
  Company Number: GB-JNJFOC-HOAFF37785

PATIENT
  Age: 54 Year
  Sex: Female

DRUGS (12)
  1. BUMETANIDE [Concomitant]
  2. BECLOMETHASONE DIPROPIONATE [Concomitant]
  3. WARFARIN [Interacting]
     Indication: ILL-DEFINED DISORDER
  4. RANITIDINE [Concomitant]
  5. AMITRIPTYLINE HCL [Concomitant]
  6. LORAZEPAM [Concomitant]
  7. ALBUTEROL [Concomitant]
  8. AMILORIDE HYDROCHLORIDE [Concomitant]
  9. IPRATROPIUM BROMIDE [Concomitant]
     Route: 055
  10. MICONAZOLE [Suspect]
     Route: 048
  11. DEXTROMORAMIDE [Concomitant]
  12. MICONAZOLE [Suspect]
     Indication: ORAL CANDIDIASIS
     Route: 048

REACTIONS (6)
  - CONTUSION [None]
  - TACHYCARDIA [None]
  - DRUG INTERACTION [None]
  - MELAENA [None]
  - HYPOTENSION [None]
  - PROTHROMBIN TIME PROLONGED [None]
